FAERS Safety Report 9104191 (Version 1)
Quarter: 2013Q1

REPORT INFORMATION
  Report Type: Spontaneous
  Country: FR (occurrence: FR)
  Receive Date: 20130219
  Receipt Date: 20130219
  Transmission Date: 20140127
  Serious: Yes (Hospitalization, Other)
  Sender: FDA-Public Use
  Company Number: FR-PFIZER INC-2013058362

PATIENT
  Age: 84 Year
  Sex: Female

DRUGS (13)
  1. LYRICA [Suspect]
     Indication: POST HERPETIC NEURALGIA
     Dosage: 50 MG, 2X/DAY
     Route: 048
     Dates: start: 20130103, end: 20130105
  2. LYRICA [Suspect]
     Dosage: 50 MG, 3X/DAY
     Dates: start: 20130106, end: 20130106
  3. LYRICA [Suspect]
     Dosage: 100 MG, 3X/DAY
     Dates: start: 20130107, end: 20130111
  4. SIMVASTATIN [Suspect]
     Dosage: UNK
     Route: 048
     Dates: end: 20130110
  5. LAROXYL [Suspect]
     Indication: POST HERPETIC NEURALGIA
     Dosage: 1 DF, 1X/DAY
     Route: 048
     Dates: start: 20130109, end: 20130111
  6. OXYCONTIN [Suspect]
     Dosage: 1 DF, 3X/DAY
     Route: 048
     Dates: start: 20130107
  7. OXYCONTIN [Suspect]
     Dosage: 10 UNK, 2X/DAY
     Dates: start: 20130110
  8. OXYCONTIN [Suspect]
     Dosage: 5 UNK, 2X/DAY
     Dates: start: 20130113
  9. DOLIPRANE [Suspect]
     Dosage: UNK
     Route: 048
     Dates: end: 20130110
  10. CIPRALAN [Concomitant]
     Dosage: 130 (1/2 DOSE MORNING, 1/2 DOSE EVENING
  11. LUMIRELAX [Concomitant]
     Dosage: 1 DF, 1X/DAY
  12. VERSATIS [Concomitant]
     Dosage: 2 DF DAILY
  13. OXYNORM [Concomitant]

REACTIONS (2)
  - Cell death [Recovered/Resolved]
  - Hepatocellular injury [Recovered/Resolved]
